FAERS Safety Report 8107145-3 (Version None)
Quarter: 2012Q1

REPORT INFORMATION
  Report Type: 
  Country: None (occurrence: None)
  Receive Date: 20120202
  Receipt Date: 20120127
  Transmission Date: 20120608
  Serious: Yes (Hospitalization)
  Sender: FDA-Public Use
  Company Number: JP-PFIZER INC-2012023806

PATIENT
  Age: 3 Year
  Sex: Female

DRUGS (2)
  1. SOMATROPIN [Suspect]
     Indication: SMALL FOR DATES BABY
     Dosage: 2.4 MG, WEEKLY (SIX TIME A WEEK)
     Route: 058
     Dates: start: 20110418
  2. AMOXICILLIN AND CLAVULANATE POTASSIUM [Concomitant]
     Indication: UPPER RESPIRATORY TRACT INFLAMMATION
     Dosage: UNK
     Route: 048
     Dates: start: 20110516, end: 20110521

REACTIONS (1)
  - PNEUMONIA [None]
